FAERS Safety Report 12669494 (Version 2)
Quarter: 2016Q3

REPORT INFORMATION
  Report Type: Report from Study
  Country: US (occurrence: US)
  Receive Date: 20160819
  Receipt Date: 20160829
  Transmission Date: 20161109
  Serious: Yes (Other)
  Sender: FDA-Public Use
  Company Number: US-ACTELION-A-US2016-140789

PATIENT
  Age: 80 Year
  Sex: Female

DRUGS (2)
  1. TRACLEER [Suspect]
     Active Substance: BOSENTAN
     Indication: PULMONARY ARTERIAL HYPERTENSION
     Dosage: 125 MG, UNK
     Route: 048
     Dates: start: 20150707
  2. RIOCIGUAT [Concomitant]
     Active Substance: RIOCIGUAT

REACTIONS (7)
  - Squamous cell carcinoma of skin [Unknown]
  - Oedema peripheral [Unknown]
  - Skin neoplasm excision [Unknown]
  - Joint effusion [Unknown]
  - Skin infection [Unknown]
  - Furuncle [Unknown]
  - Weight increased [Unknown]
